FAERS Safety Report 25122538 (Version 1)
Quarter: 2025Q1

REPORT INFORMATION
  Report Type: Report from Study
  Country: CA (occurrence: CA)
  Receive Date: 20250326
  Receipt Date: 20250326
  Transmission Date: 20250409
  Serious: Yes (Hospitalization)
  Sender: CHIESI
  Company Number: CA-CHIESI-2025CHF01935

PATIENT
  Age: 39 Year
  Sex: Female
  Weight: 51.4 kg

DRUGS (3)
  1. DEFERIPRONE [Suspect]
     Active Substance: DEFERIPRONE
     Indication: Thalassaemia
     Dosage: 5000 MILLIGRAM, QD
     Route: 048
  2. DEFERIPRONE [Suspect]
     Active Substance: DEFERIPRONE
     Dosage: 2000 MILLIGRAM, TID
     Route: 048
     Dates: start: 20211115
  3. DEFERIPRONE [Suspect]
     Active Substance: DEFERIPRONE
     Dosage: UNK, TID
     Route: 048

REACTIONS (3)
  - Femur fracture [Unknown]
  - Prescribed overdose [Unknown]
  - Off label use [Not Recovered/Not Resolved]

NARRATIVE: CASE EVENT DATE: 20211115
